FAERS Safety Report 24633138 (Version 1)
Quarter: 2024Q4

REPORT INFORMATION
  Report Type: Spontaneous
  Country: CN (occurrence: CN)
  Receive Date: 20241118
  Receipt Date: 20241118
  Transmission Date: 20250115
  Serious: Yes (Hospitalization, Disabling, Other)
  Sender: MERCK
  Company Number: CN-009507513-2411CHN004631

PATIENT
  Age: 66 Year
  Sex: Male
  Weight: 63.9 kg

DRUGS (3)
  1. STEGLATRO [Suspect]
     Active Substance: ERTUGLIFLOZIN PIDOLATE
     Indication: Type 2 diabetes mellitus
     Dosage: 5 MG, QD
     Route: 048
     Dates: start: 20240307, end: 20241101
  2. RYZODEG 70/30 [Concomitant]
     Active Substance: INSULIN ASPART\INSULIN DEGLUDEC
     Indication: Type 2 diabetes mellitus
     Dosage: 12 U, QD
     Route: 058
     Dates: start: 20240307, end: 20241025
  3. REPAGLINIDE [Concomitant]
     Active Substance: REPAGLINIDE
     Indication: Type 2 diabetes mellitus
     Dosage: 1 MG, TID
     Route: 048
     Dates: start: 20240307, end: 20241106

REACTIONS (6)
  - Decreased appetite [Unknown]
  - Urinary tract infection staphylococcal [Recovering/Resolving]
  - Nephrolithiasis [Unknown]
  - Renal hydrocele [Unknown]
  - Perinephric collection [Unknown]
  - Diabetes mellitus [Unknown]

NARRATIVE: CASE EVENT DATE: 20241001
